FAERS Safety Report 21238696 (Version 1)
Quarter: 2022Q3

REPORT INFORMATION
  Report Type: Spontaneous
  Country: BR (occurrence: BR)
  Receive Date: 20220822
  Receipt Date: 20220822
  Transmission Date: 20221026
  Serious: Yes (Other)
  Sender: FDA-Public Use
  Company Number: BR-PFIZER INC-202201069913

PATIENT
  Sex: Female

DRUGS (1)
  1. VENLAFAXINE HYDROCHLORIDE [Suspect]
     Active Substance: VENLAFAXINE HYDROCHLORIDE
     Dosage: 75 MG
     Dates: start: 202203

REACTIONS (4)
  - Deafness [Unknown]
  - Feeling abnormal [Unknown]
  - Constipation [Unknown]
  - Tinnitus [Unknown]

NARRATIVE: CASE EVENT DATE: 20220301
